FAERS Safety Report 9865165 (Version 2)
Quarter: 2014Q1

REPORT INFORMATION
  Report Type: Spontaneous
  Country: US (occurrence: US)
  Receive Date: 20140203
  Receipt Date: 20140203
  Transmission Date: 20141002
  Serious: No
  Sender: FDA-Public Use
  Company Number: US-ALLERGAN-1304207US

PATIENT
  Age: 47 Year
  Sex: Female

DRUGS (4)
  1. RESTASIS [Suspect]
     Indication: DRY EYE
     Dosage: 2 GTT, BID
     Route: 047
     Dates: start: 20130228
  2. RESTASIS [Suspect]
     Dosage: UNK
     Route: 047
     Dates: start: 20130227, end: 20130227
  3. REFRESH OPTIVE [Concomitant]
     Indication: EYE LUBRICATION THERAPY
  4. REFRESH DROPS NOS [Concomitant]
     Indication: EYE LUBRICATION THERAPY

REACTIONS (4)
  - Headache [Unknown]
  - Urticaria [Recovered/Resolved]
  - Urticaria [Recovered/Resolved]
  - Urticaria [Recovered/Resolved]
